FAERS Safety Report 7018815-2 (Version None)
Quarter: 2010Q3

REPORT INFORMATION
  Report Type: 
  Country: None (occurrence: None)
  Receive Date: 20100928
  Receipt Date: 20100916
  Transmission Date: 20110219
  Serious: Yes (Other)
  Sender: FDA-Public Use
  Company Number: US-PFIZER INC-2010118217

PATIENT
  Sex: Female
  Weight: 156.9 kg

DRUGS (2)
  1. SUTENT [Suspect]
     Indication: METASTASIS
     Dosage: 50 MG, EVERY OTHER DAY
     Route: 048
     Dates: start: 20090501
  2. ZOMETA [Suspect]
     Indication: BONE DENSITY ABNORMAL
     Dosage: UNK

REACTIONS (1)
  - OSTEONECROSIS [None]
